FAERS Safety Report 8053280-8 (Version None)
Quarter: 2012Q1

REPORT INFORMATION
  Report Type: 
  Country: None (occurrence: None)
  Receive Date: 20120118
  Receipt Date: 20120113
  Transmission Date: 20120608
  Serious: Yes (Other)
  Sender: FDA-Public Use
  Company Number: GB-ROCHE-1030603

PATIENT
  Weight: 27.3 kg

DRUGS (5)
  1. PREDNISOLONE [Concomitant]
     Route: 048
  2. LANSOPRAZOLE [Concomitant]
  3. FOLIC ACID [Concomitant]
     Route: 048
  4. ACTEMRA [Suspect]
     Indication: JUVENILE ARTHRITIS
  5. METHOTREXATE [Concomitant]
     Route: 058

REACTIONS (1)
  - WHITE BLOOD CELL COUNT INCREASED [None]
